FAERS Safety Report 26047958 (Version 2)
Quarter: 2025Q4

REPORT INFORMATION
  Report Type: Spontaneous
  Country: US (occurrence: US)
  Receive Date: 20251114
  Receipt Date: 20251209
  Transmission Date: 20260118
  Serious: Yes (Other)
  Sender: ADMA BIOLOGICS
  Company Number: US-ADMA BIOLOGICS INC.-US-2025ADM000358

PATIENT
  Sex: Female

DRUGS (3)
  1. BIVIGAM [Suspect]
     Active Substance: HUMAN IMMUNOGLOBULIN G
     Indication: Immunodeficiency common variable
     Dosage: 25 GRAM, EVERY 4 WEEKS
     Route: 042
     Dates: start: 202207
  2. BIVIGAM [Suspect]
     Active Substance: HUMAN IMMUNOGLOBULIN G
     Dosage: 8 GRAM,(SCHEDULE 25 G, 2 VIALS, EVERY 4 WEEKS)
     Route: 042
     Dates: start: 20251003, end: 20251003
  3. BIVIGAM [Suspect]
     Active Substance: HUMAN IMMUNOGLOBULIN G
     Dosage: 8 GRAM, (SCHEDULE 25 G EVERY 4 WEEKS, 2 VIAL)
     Route: 042
     Dates: start: 20251003, end: 20251003

REACTIONS (5)
  - Confusional state [Unknown]
  - Asthenia [Unknown]
  - Brain fog [Unknown]
  - Fatigue [Unknown]
  - Feeling abnormal [Unknown]

NARRATIVE: CASE EVENT DATE: 20250101
